FAERS Safety Report 13813983 (Version 9)
Quarter: 2019Q1

REPORT INFORMATION
  Report Type: Spontaneous
  Country: US (occurrence: US)
  Receive Date: 20170731
  Receipt Date: 20190206
  Transmission Date: 20190417
  Serious: Yes (Other)
  Sender: FDA-Public Use
  Company Number: US-PFIZER INC-2017328998

PATIENT
  Age: 51 Year
  Sex: Female
  Weight: 87.54 kg

DRUGS (9)
  1. TURMERIC [Concomitant]
     Active Substance: HERBALS\TURMERIC
     Indication: PAIN
     Dosage: UNK
  2. CALCIUM/MAGNESIUM/VITAMIN D [Concomitant]
     Indication: MINERAL SUPPLEMENTATION
     Dosage: UNK [PILL HAS 200MG CALCIUM, 200MG MAGNESIUM AND 75 OF VITAMIN D]
  3. FASLODEX [Concomitant]
     Active Substance: FULVESTRANT
     Dosage: 500 MG, MONTHLY (TWO INTRAMUSCULAR INJECTIONS ONCE A MONTH)
     Route: 030
     Dates: start: 20170623
  4. XGEVA [Concomitant]
     Active Substance: DENOSUMAB
     Indication: BONE DISORDER
     Dosage: UNK, MONTHLY [SHOT IN THE MUSCLE IN MY ARM ONCE A MONTH/500 MG OR 100 MG]
     Route: 030
     Dates: start: 20170623
  5. IBRANCE [Suspect]
     Active Substance: PALBOCICLIB
     Dosage: 100 MG, CYCLIC (ONCE A DAY FOR 21 DAYS AND THEN OFF FOR 7 DAYS)
     Route: 048
     Dates: end: 20180531
  6. FASLODEX [Concomitant]
     Active Substance: FULVESTRANT
     Indication: ANTIOESTROGEN THERAPY
     Dosage: UNK, MONTHLY [TWO SHOTS IN THE MUSCLE IN MY BUTT, ONCE A MONTH]
     Route: 030
     Dates: start: 20170623
  7. IBRANCE [Suspect]
     Active Substance: PALBOCICLIB
     Dosage: 100 MG, CYCLIC (ONCE A DAY, 21 DAYS, 7 DAYS OFF)
     Route: 048
     Dates: start: 20170811
  8. IBRANCE [Suspect]
     Active Substance: PALBOCICLIB
     Indication: BREAST CANCER METASTATIC
     Dosage: 125 MG, CYCLIC (ONCE A DAY FOR 21 DAYS AND THEN 7 DAYS OFF)
     Dates: start: 20170711
  9. VITAMIN E [Concomitant]
     Active Substance: .ALPHA.-TOCOPHEROL
     Dosage: UNK

REACTIONS (11)
  - White blood cell count decreased [Recovered/Resolved]
  - Infection [Unknown]
  - Body height decreased [Unknown]
  - Feeling cold [Unknown]
  - Nasopharyngitis [Recovering/Resolving]
  - Hot flush [Not Recovered/Not Resolved]
  - Cough [Unknown]
  - Muscle strain [Unknown]
  - Malaise [Unknown]
  - Hyperhidrosis [Unknown]
  - Neoplasm progression [Unknown]

NARRATIVE: CASE EVENT DATE: 2017
